FAERS Safety Report 5657685-1 (Version None)
Quarter: 2008Q1

REPORT INFORMATION
  Report Type: 
  Country: None (occurrence: None)
  Receive Date: 20080310
  Receipt Date: 20080304
  Transmission Date: 20080703
  Serious: Yes (Hospitalization)
  Sender: FDA-Public Use
  Company Number: NZ-BOEHRINGER INGELHEIM GMBH, GERMANY-2008-BP-03167RO

PATIENT
  Age: 58 Year
  Sex: Female

DRUGS (15)
  1. PAROXETINE HCL [Suspect]
     Indication: OBSESSIVE-COMPULSIVE DISORDER
  2. METHYLENE BLUE [Suspect]
     Indication: PARATHYROIDECTOMY
     Route: 042
  3. OMEPRAZOLE [Concomitant]
     Indication: GASTROOESOPHAGEAL REFLUX DISEASE
     Route: 048
  4. SIMVASTATIN [Concomitant]
     Indication: HYPERCHOLESTEROLAEMIA
     Route: 048
  5. MIDAZOLAM HCL [Concomitant]
     Indication: INDUCTION OF ANAESTHESIA
     Route: 042
  6. MIDAZOLAM HCL [Concomitant]
     Indication: ANXIETY
     Route: 042
  7. FENTANYL [Concomitant]
     Indication: INDUCTION OF ANAESTHESIA
     Route: 042
  8. PROPOFOL [Concomitant]
     Indication: INDUCTION OF ANAESTHESIA
     Route: 042
  9. ROCURONIUM BROMIDE [Concomitant]
     Indication: INDUCTION OF ANAESTHESIA
     Route: 042
  10. SEVOFLURANE [Concomitant]
     Indication: ANAESTHESIA
     Route: 055
  11. NEOSTIGMINE [Concomitant]
     Indication: NEUROMUSCULAR BLOCKADE REVERSAL
     Route: 042
  12. ATROPINE [Concomitant]
     Indication: NEUROMUSCULAR BLOCKADE REVERSAL
     Route: 042
  13. METARAMINOL [Concomitant]
     Indication: HYPOTENSION
     Route: 042
  14. EPINEPHRINE [Concomitant]
     Indication: HYPOTENSION
     Route: 042
  15. MORPHINE [Concomitant]
     Indication: PAIN
     Route: 042

REACTIONS (2)
  - DRUG INTERACTION [None]
  - SEROTONIN SYNDROME [None]
